FAERS Safety Report 7649087-3 (Version None)
Quarter: 2011Q3

REPORT INFORMATION
  Report Type: 
  Country: None (occurrence: None)
  Receive Date: 20110726
  Receipt Date: 20110719
  Transmission Date: 20111222
  Serious: Yes (Other)
  Sender: FDA-Public Use
  Company Number: 2011SP034031

PATIENT
  Age: 39 Year
  Sex: Male

DRUGS (1)
  1. SAPHRIS [Suspect]
     Indication: PRODUCT USED FOR UNKNOWN INDICATION
     Dosage: 5 MG;BID; SL
     Route: 060

REACTIONS (4)
  - HALLUCINATION [None]
  - AGITATION [None]
  - INSOMNIA [None]
  - DRUG INEFFECTIVE [None]
